FAERS Safety Report 5990602-3 (Version None)
Quarter: 2008Q4

REPORT INFORMATION
  Report Type: 
  Country: None (occurrence: None)
  Receive Date: 20081211
  Receipt Date: 20081205
  Transmission Date: 20090506
  Serious: Yes (Hospitalization, Disabling)
  Sender: FDA-Public Use
  Company Number: A0759296A

PATIENT
  Age: 70 Year
  Sex: Male

DRUGS (9)
  1. COREG CR [Suspect]
     Indication: HYPERTENSION
     Route: 048
     Dates: start: 20070101, end: 20080408
  2. NORVASC [Suspect]
     Dosage: 10MG TWICE PER DAY
     Dates: start: 20000101, end: 20080101
  3. HYDRALAZINE HCL [Concomitant]
  4. RENAGEL [Concomitant]
  5. PHOSPHAGEL [Concomitant]
  6. NEPHRO CAP [Concomitant]
  7. PROCRIT [Concomitant]
  8. NORVASC [Concomitant]
  9. DIOVAN [Concomitant]

REACTIONS (8)
  - ABASIA [None]
  - BLOOD POTASSIUM INCREASED [None]
  - DRUG INEFFECTIVE [None]
  - FALL [None]
  - FLUID RETENTION [None]
  - GAIT DISTURBANCE [None]
  - MUSCULAR WEAKNESS [None]
  - OEDEMA [None]
